FAERS Safety Report 13568452 (Version 2)
Quarter: 2017Q3

REPORT INFORMATION
  Report Type: Spontaneous
  Country: PT (occurrence: PT)
  Receive Date: 20170522
  Receipt Date: 20170711
  Transmission Date: 20171127
  Serious: Yes (Other)
  Sender: FDA-Public Use
  Company Number: PT-PFIZER INC-2017216174

PATIENT
  Age: 15 Year
  Sex: Male

DRUGS (8)
  1. PARACETAMOL [Concomitant]
     Active Substance: ACETAMINOPHEN
     Dosage: UNK
     Route: 042
  2. FAULDEXATO [Suspect]
     Active Substance: METHOTREXATE
     Indication: OSTEOSARCOMA
     Dosage: 20520 MG CONTINUOUS INFUSION 4 HOURS
     Route: 042
     Dates: start: 20170504, end: 20170504
  3. ONDANSETRON [Concomitant]
     Active Substance: ONDANSETRON
     Dosage: UNK
     Route: 042
  4. SUCRALFATO [Concomitant]
     Active Substance: SUCRALFATE
     Dosage: UNK
     Route: 048
  5. METOCLOPRAMIDA [Concomitant]
     Active Substance: METOCLOPRAMIDE HYDROCHLORIDE
     Dosage: UNK
     Route: 042
  6. CALCIUM FOLINATE [Concomitant]
     Active Substance: LEUCOVORIN CALCIUM
     Dosage: UNK
     Route: 048
  7. LEVOFOLINATE SODIUM [Concomitant]
     Active Substance: LEVOLEUCOVORIN DISODIUM
     Dosage: UNK
     Route: 042
  8. FUROSEMIDE. [Concomitant]
     Active Substance: FUROSEMIDE
     Dosage: UNK
     Route: 042

REACTIONS (3)
  - Lip oedema [Recovered/Resolved]
  - Eyelid oedema [Recovered/Resolved]
  - Nasal obstruction [Recovered/Resolved]

NARRATIVE: CASE EVENT DATE: 20170504
